FAERS Safety Report 22537736 (Version 1)
Quarter: 2023Q2

REPORT INFORMATION
  Report Type: Spontaneous
  Country: US (occurrence: None)
  Receive Date: 20230607
  Receipt Date: 20230607
  Transmission Date: 20230722
  Serious: No
  Sender: FDA-Public Use
  Company Number: None

PATIENT
  Sex: Male

DRUGS (22)
  1. LENALIDOMIDE [Suspect]
     Active Substance: LENALIDOMIDE
     Indication: Plasma cell myeloma
     Dosage: OTHER FREQUENCY : 21D/28D CYCLE;?
     Route: 048
  2. AMLODIPINE [Concomitant]
     Active Substance: AMLODIPINE BESYLATE
  3. ELIQUIS [Concomitant]
     Active Substance: APIXABAN
  4. ASPIRIN [Concomitant]
     Active Substance: ASPIRIN
  5. ATORVASTATIN [Concomitant]
     Active Substance: ATORVASTATIN
  6. VITAMIN D3 [Concomitant]
     Active Substance: CHOLECALCIFEROL
  7. DEXAMETHASONE [Concomitant]
     Active Substance: DEXAMETHASONE
  8. ULORIC [Concomitant]
     Active Substance: FEBUXOSTAT
  9. FERROUS SULFATE [Concomitant]
     Active Substance: FERROUS SULFATE
  10. FLONASE [Concomitant]
     Active Substance: FLUTICASONE PROPIONATE
  11. NORCO [Concomitant]
     Active Substance: ACETAMINOPHEN\HYDROCODONE BITARTRATE
  12. FOLIC ACID [Concomitant]
     Active Substance: FOLIC ACID
  13. LEVOTHYROXINE [Concomitant]
     Active Substance: LEVOTHYROXINE
  14. MELATONIN [Concomitant]
     Active Substance: MELATONIN
  15. METOPROLOL [Concomitant]
     Active Substance: METOPROLOL
  16. ONDANSETRON [Concomitant]
     Active Substance: ONDANSETRON
  17. PANTOPRAZOLE [Concomitant]
     Active Substance: PANTOPRAZOLE
  18. ZEMPLAR [Concomitant]
     Active Substance: PARICALCITOL
  19. DILANTIN [Concomitant]
     Active Substance: PHENYTOIN
  20. FLOMAX [Concomitant]
     Active Substance: TAMSULOSIN HYDROCHLORIDE
  21. VALTREX [Concomitant]
     Active Substance: VALACYCLOVIR HYDROCHLORIDE
  22. OCUTIVA TUMS [Concomitant]

REACTIONS (1)
  - Hospice care [None]
